FAERS Safety Report 8013578-6 (Version None)
Quarter: 2011Q4

REPORT INFORMATION
  Report Type: 
  Country: None (occurrence: None)
  Receive Date: 20111227
  Receipt Date: 20111227
  Transmission Date: 20120403
  Serious: Yes (Hospitalization)
  Sender: FDA-Public Use
  Company Number: None

PATIENT
  Age: 73 Year
  Sex: Male
  Weight: 84.1 kg

DRUGS (3)
  1. IBUPROFEN [Suspect]
     Indication: INFLAMMATION
  2. IBUPROFEN [Suspect]
     Indication: PAIN
  3. WARFARIN SODIUM [Suspect]
     Indication: HYPERCOAGULATION
     Dosage: MG PO
     Route: 048
     Dates: start: 20080812

REACTIONS (1)
  - GASTRIC HAEMORRHAGE [None]
